FAERS Safety Report 6910980-8 (Version None)
Quarter: 2010Q3

REPORT INFORMATION
  Report Type: 
  Country: None (occurrence: None)
  Receive Date: 20100806
  Receipt Date: 20100730
  Transmission Date: 20110219
  Serious: Yes (Hospitalization)
  Sender: FDA-Public Use
  Company Number: A0865653A

PATIENT
  Age: 70 Year
  Sex: Male
  Weight: 113.6 kg

DRUGS (8)
  1. AVANDIA [Suspect]
     Dosage: 8MG PER DAY
     Route: 048
     Dates: start: 19960101, end: 20080201
  2. ALLOPURINOL [Concomitant]
  3. AVAPRO [Concomitant]
  4. VYTORIN [Concomitant]
  5. COLCHICINE [Concomitant]
  6. PROPRANOLOL [Concomitant]
  7. GEMFIBROZIL [Concomitant]
  8. MOBIC [Concomitant]

REACTIONS (2)
  - DEPRESSION [None]
  - MYOCARDIAL INFARCTION [None]
